FAERS Safety Report 7183366-1 (Version None)
Quarter: 2010Q4

REPORT INFORMATION
  Report Type: 
  Country: None (occurrence: None)
  Receive Date: 20101220
  Receipt Date: 20101220
  Transmission Date: 20110411
  Serious: Yes (Hospitalization)
  Sender: FDA-Public Use
  Company Number: None

PATIENT
  Age: 61 Year
  Sex: Male
  Weight: 81 kg

DRUGS (12)
  1. COUMADIN [Suspect]
     Indication: ATRIAL FIBRILLATION
     Dosage: 7.5 MG QTTHSS PO CHRONIC
     Route: 048
  2. COUMADIN [Suspect]
     Indication: ATRIAL FIBRILLATION
     Dosage: 10 MG MWF PO CHRONIC
     Route: 048
  3. PRAZOSIN HCL [Concomitant]
  4. AMLODIPINE [Concomitant]
  5. CARDIZEM CD [Concomitant]
  6. ROCALTROL [Concomitant]
  7. LASIX [Concomitant]
  8. PREDNISONE [Concomitant]
  9. LISINOPRIL [Concomitant]
  10. METOPROLOL [Concomitant]
  11. PRILOSEC [Concomitant]
  12. VIT B12 [Concomitant]

REACTIONS (5)
  - BLOOD CREATININE INCREASED [None]
  - BLOOD UREA INCREASED [None]
  - DIEULAFOY'S VASCULAR MALFORMATION [None]
  - GASTRIC ULCER [None]
  - UPPER GASTROINTESTINAL HAEMORRHAGE [None]
